FAERS Safety Report 9589182 (Version 1)
Quarter: 2013Q4

REPORT INFORMATION
  Report Type: Spontaneous
  Country: US (occurrence: US)
  Receive Date: 20131003
  Receipt Date: 20131003
  Transmission Date: 20140711
  Serious: No
  Sender: FDA-Public Use
  Company Number: US-AMGEN-USASP2012069225

PATIENT
  Age: 55 Year
  Sex: Male
  Weight: 90.7 kg

DRUGS (9)
  1. ENBREL [Suspect]
     Indication: ANKYLOSING SPONDYLITIS
     Dosage: UNK
     Dates: start: 20000101, end: 20091001
  2. LEVOTHROID [Concomitant]
     Dosage: UNK
  3. LIPITOR [Concomitant]
     Dosage: UNK
  4. LOSARTAN [Concomitant]
     Dosage: UNK
  5. MOBIC [Concomitant]
     Dosage: UNK
  6. MULTIVITAMIN                       /07504101/ [Concomitant]
     Dosage: UNK
  7. OMEPRAZOLE [Concomitant]
     Dosage: UNK
  8. VITAMIN D3 [Concomitant]
     Dosage: UNK
  9. ZYRTEC [Concomitant]
     Dosage: UNK

REACTIONS (2)
  - Therapeutic response decreased [Unknown]
  - Sinusitis [Recovering/Resolving]
